FAERS Safety Report 14939823 (Version 2)
Quarter: 2018Q3

REPORT INFORMATION
  Report Type: Report from Study
  Country: US (occurrence: US)
  Receive Date: 20180525
  Receipt Date: 20180713
  Transmission Date: 20181010
  Serious: Yes (Hospitalization)
  Sender: FDA-Public Use
  Company Number: US-UCBSA-2018023195

PATIENT
  Age: 63 Year
  Sex: Male

DRUGS (5)
  1. PREVACID [Concomitant]
     Active Substance: LANSOPRAZOLE
     Indication: PRODUCT USED FOR UNKNOWN INDICATION
     Dosage: 15 MG DAILY
     Route: 048
  2. KEPPRA [Suspect]
     Active Substance: LEVETIRACETAM
     Indication: PRODUCT USED FOR UNKNOWN INDICATION
     Dosage: UNK
  3. LISINOPRIL. [Concomitant]
     Active Substance: LISINOPRIL
     Indication: PRODUCT USED FOR UNKNOWN INDICATION
     Dosage: 2.5 MG, 2X/DAY (BID)
     Route: 048
  4. LACOSAMIDE. [Suspect]
     Active Substance: LACOSAMIDE
     Indication: SEIZURE
     Dosage: 20 ML, 2X/DAY (BID); STRENGTH: 10MG/ML
     Route: 048
     Dates: start: 2018
  5. KEPPRA [Suspect]
     Active Substance: LEVETIRACETAM
     Dosage: 10 ML, 2X/DAY (BID); STRENGTH: 100 MG/ML
     Route: 048
     Dates: start: 2018

REACTIONS (8)
  - Staring [Unknown]
  - Influenza [Recovered/Resolved]
  - Dyskinesia [Unknown]
  - Fall [Unknown]
  - Pain in extremity [Unknown]
  - Oedema peripheral [Unknown]
  - Fatigue [Unknown]
  - Status epilepticus [Unknown]

NARRATIVE: CASE EVENT DATE: 201803
